FAERS Safety Report 16140580 (Version 1)
Quarter: 2019Q2

REPORT INFORMATION
  Report Type: Report from Study
  Country: US (occurrence: US)
  Receive Date: 20190401
  Receipt Date: 20190401
  Transmission Date: 20190711
  Serious: Yes (Hospitalization)
  Sender: FDA-Public Use
  Company Number: US-TEVA-2019-US-1031395

PATIENT
  Age: 32 Year
  Sex: Female

DRUGS (1)
  1. COPAXONE [Suspect]
     Active Substance: GLATIRAMER ACETATE
     Indication: MULTIPLE SCLEROSIS
     Route: 058
     Dates: start: 20150806, end: 20180831

REACTIONS (7)
  - Limb injury [Unknown]
  - Fall [Unknown]
  - Head injury [Unknown]
  - Spinal deformity [Unknown]
  - Monoplegia [Recovered/Resolved]
  - Multiple sclerosis [Unknown]
  - Walking aid user [Unknown]

NARRATIVE: CASE EVENT DATE: 201807
